FAERS Safety Report 25754446 (Version 1)
Quarter: 2025Q3

REPORT INFORMATION
  Report Type: Spontaneous
  Country: US (occurrence: US)
  Receive Date: 20250903
  Receipt Date: 20250903
  Transmission Date: 20251021
  Serious: Yes (Other)
  Sender: AMGEN
  Company Number: US-AMGEN-USASP2025169001

PATIENT
  Age: 82 Year
  Sex: Female

DRUGS (2)
  1. PAVBLU [Suspect]
     Active Substance: AFLIBERCEPT-AYYH
     Indication: Neovascular age-related macular degeneration
     Route: 065
     Dates: start: 20250814
  2. PAVBLU [Suspect]
     Active Substance: AFLIBERCEPT-AYYH
     Indication: Choroidal neovascularisation

REACTIONS (1)
  - Iridocyclitis [Unknown]

NARRATIVE: CASE EVENT DATE: 20250814
